FAERS Safety Report 8759287 (Version 4)
Quarter: 2013Q1

REPORT INFORMATION
  Report Type: Report from Study
  Country: MX (occurrence: MX)
  Receive Date: 20120829
  Receipt Date: 20130118
  Transmission Date: 20140127
  Serious: Yes (Death, Other)
  Sender: FDA-Public Use
  Company Number: MX-BRISTOL-MYERS SQUIBB COMPANY-16907123

PATIENT
  Age: 74 Year
  Sex: Male

DRUGS (3)
  1. IPILIMUMAB [Suspect]
     Indication: METASTATIC MALIGNANT MELANOMA
     Dosage: 1DF: 3MG/KG OR 10MG/KG
     Route: 042
     Dates: start: 20120711, end: 20120801
  2. ZOFRAN [Concomitant]
     Dates: start: 20120712, end: 20120912
  3. X-PREP [Concomitant]
     Dates: start: 20120712, end: 20120912

REACTIONS (2)
  - Malignant neoplasm progression [Fatal]
  - Dehydration [Not Recovered/Not Resolved]
